FAERS Safety Report 5316886-2 (Version None)
Quarter: 2007Q2

REPORT INFORMATION
  Report Type: 
  Country: None (occurrence: None)
  Receive Date: 20070504
  Receipt Date: 20070503
  Transmission Date: 20071010
  Serious: Yes (Other)
  Sender: FDA-Public Use
  Company Number: US-GLAXOSMITHKLINE-A0649865A

PATIENT
  Age: 55 Year
  Sex: Female

DRUGS (4)
  1. WELLBUTRIN [Suspect]
     Indication: DEPRESSION
     Dosage: 150MG PER DAY
     Route: 048
     Dates: start: 20070301
  2. PEXEVA [Suspect]
     Indication: DEPRESSION
     Dosage: 20MG AT NIGHT
     Route: 048
     Dates: start: 20070420, end: 20070427
  3. ATIVAN [Concomitant]
  4. TYLENOL [Concomitant]

REACTIONS (3)
  - DIZZINESS [None]
  - HEAD INJURY [None]
  - SYNCOPE [None]
